FAERS Safety Report 15799534 (Version 1)
Quarter: 2019Q1

REPORT INFORMATION
  Report Type: Spontaneous
  Country: CZ (occurrence: CZ)
  Receive Date: 20190108
  Receipt Date: 20190108
  Transmission Date: 20190417
  Serious: Yes (Other)
  Sender: FDA-Public Use
  Company Number: CZ-ACCORD-101025

PATIENT
  Age: 47 Year
  Sex: Female

DRUGS (2)
  1. SERTRALINE [Suspect]
     Active Substance: SERTRALINE HYDROCHLORIDE
     Indication: DEPRESSION
     Route: 048
  2. AMITRIPTYLINE [Suspect]
     Active Substance: AMITRIPTYLINE
     Indication: DEPRESSION
     Dosage: 27 MG (ON EVENING), QD
     Route: 065

REACTIONS (9)
  - Blood pressure fluctuation [Recovered/Resolved]
  - Depression [Unknown]
  - Therapeutic response decreased [Unknown]
  - Fatigue [Unknown]
  - Dyspepsia [Recovered/Resolved]
  - Mental disorder [Recovered/Resolved]
  - Serotonin syndrome [Recovered/Resolved]
  - Erythema [Recovered/Resolved]
  - Circulatory collapse [Recovered/Resolved]

NARRATIVE: CASE EVENT DATE: 2016
